FAERS Safety Report 25873590 (Version 1)
Quarter: 2025Q4

REPORT INFORMATION
  Report Type: Spontaneous
  Country: US (occurrence: US)
  Receive Date: 20251002
  Receipt Date: 20251002
  Transmission Date: 20260117
  Serious: No
  Sender: INTRA-CELLULAR THERAPIES
  Company Number: US-INTRA-CELLULAR THERAPIES, INC.-2025ICT01932

PATIENT
  Sex: Female
  Weight: 77.098 kg

DRUGS (6)
  1. CAPLYTA [Suspect]
     Active Substance: LUMATEPERONE
     Indication: Bipolar I disorder
     Dosage: 10.5 MG, 1X/DAY AT NIGHT
  2. CAPLYTA [Suspect]
     Active Substance: LUMATEPERONE
     Indication: Psychotic disorder
     Dosage: 21 MG, 1X/DAY AT NIGHT
  3. LAMOTRIGINE [Concomitant]
     Active Substance: LAMOTRIGINE
     Dosage: 100 MG, 1X/DAY
  4. VILAZODONE HYDROCHLORIDE [Concomitant]
     Active Substance: VILAZODONE HYDROCHLORIDE
     Dosage: 40 MG, 1X/DAY
  5. HYDROXYZINE [Concomitant]
     Active Substance: HYDROXYZINE HYDROCHLORIDE
     Dosage: 10 TO 25 MG, 1X/DAY AT NIGHT
  6. UNSPECIFIED INGREDIENT [Concomitant]
     Active Substance: UNSPECIFIED INGREDIENT

REACTIONS (3)
  - Eye infection [Recovered/Resolved]
  - Periorbital oedema [Unknown]
  - Vision blurred [Not Recovered/Not Resolved]
